FAERS Safety Report 8033027-1 (Version None)
Quarter: 2012Q1

REPORT INFORMATION
  Report Type: 
  Country: None (occurrence: None)
  Receive Date: 20120110
  Receipt Date: 20120104
  Transmission Date: 20120608
  Serious: Yes (Hospitalization, Other)
  Sender: FDA-Public Use
  Company Number: US-BAYER-201039300NA

PATIENT
  Age: 30 Year
  Sex: Female
  Weight: 62 kg

DRUGS (11)
  1. YAZ [Suspect]
     Dosage: UNK UNK, QD
     Route: 048
     Dates: start: 20070901, end: 20081230
  2. PHENAZOPYRIDINE HCL TAB [Concomitant]
     Dosage: 100 MG, UNK
     Route: 048
     Dates: start: 20080101
  3. FLUOXETINE [Concomitant]
     Indication: DEPRESSION
     Dosage: 10 MG, UNK
     Route: 048
     Dates: start: 20080201
  4. MIDRIN [Concomitant]
  5. ISMOTHETHEPT/ACETAMINOPHEN/DICHLPHIN [Concomitant]
     Indication: MIGRAINE
     Route: 048
  6. CLOBETASOL PROPIONATE [Concomitant]
     Dosage: UNK
     Route: 061
     Dates: start: 20080101
  7. LUNESTA [Concomitant]
     Indication: INSOMNIA
     Dosage: 3 MG, UNK
     Route: 048
  8. TRAZODONE HCL [Concomitant]
  9. LORATADINE [Concomitant]
     Indication: RHINITIS ALLERGIC
     Dosage: 10 MG, UNK
     Route: 048
     Dates: start: 20070801
  10. PROMETHAZINE HCL W/PHENYLEPH.HCL/CODE.PHOS. [Concomitant]
     Dosage: 25 MG, UNK
     Route: 048
     Dates: start: 20080101
  11. TRAMADOL HCL CF [Concomitant]
     Dosage: 50 MG, UNK
     Route: 048
     Dates: start: 20080101

REACTIONS (3)
  - COSTOCHONDRITIS [None]
  - CHOLECYSTECTOMY [None]
  - PORTAL VEIN THROMBOSIS [None]
